FAERS Safety Report 9310691 (Version 2)
Quarter: 2013Q2

REPORT INFORMATION
  Report Type: Report from Study
  Country: CA (occurrence: CA)
  Receive Date: 20130527
  Receipt Date: 20130611
  Transmission Date: 20140414
  Serious: Yes (Hospitalization)
  Sender: FDA-Public Use
  Company Number: CA-ROCHE-1210176

PATIENT
  Age: 60 Year
  Sex: Male
  Weight: 86.3 kg

DRUGS (16)
  1. ACTEMRA [Suspect]
     Indication: RHEUMATOID ARTHRITIS
     Route: 042
     Dates: start: 20130205
  2. ACTEMRA [Suspect]
     Route: 042
     Dates: start: 20130424
  3. IMURAN [Concomitant]
  4. AVAPRO [Concomitant]
  5. COVERSYL [Concomitant]
  6. FUROSEMIDE [Concomitant]
  7. SINGULAIR [Concomitant]
  8. CRESTOR [Concomitant]
  9. OXAZEPAM [Concomitant]
  10. PANTOLOC [Concomitant]
  11. WELLBUTRIN XL [Concomitant]
  12. ASA [Concomitant]
  13. METFORMIN [Concomitant]
  14. TYLENOL [Concomitant]
  15. COUMADIN [Concomitant]
  16. BISOPROLOL [Concomitant]

REACTIONS (4)
  - Haematoma [Unknown]
  - Infection [Not Recovered/Not Resolved]
  - Lung infection [Recovered/Resolved]
  - Blood pressure increased [Recovered/Resolved]
